FAERS Safety Report 25943280 (Version 1)
Quarter: 2025Q4

REPORT INFORMATION
  Report Type: Spontaneous
  Country: CN (occurrence: CN)
  Receive Date: 20251021
  Receipt Date: 20251021
  Transmission Date: 20260117
  Serious: Yes (Other)
  Sender: BAXTER
  Company Number: None

PATIENT
  Age: 57 Year
  Sex: Female
  Weight: 57 kg

DRUGS (9)
  1. CYCLOPHOSPHAMIDE [Suspect]
     Active Substance: CYCLOPHOSPHAMIDE
     Indication: Invasive ductal breast carcinoma
     Dosage: 0.8 G, QD (D1) (40 DROPS/MIN) (INTRAVENOUS POINT)
     Route: 041
     Dates: start: 20250919, end: 20250919
  2. CYCLOPHOSPHAMIDE [Suspect]
     Active Substance: CYCLOPHOSPHAMIDE
     Indication: Metastases to lymph nodes
  3. SODIUM CHLORIDE [Suspect]
     Active Substance: SODIUM CHLORIDE
     Dosage: 500 ML, QD (D1) (CYCLOPHOSPHAMIDE + 0.9% SODIUM CHLORIDE) (40 DROPS/MIN) (INTRAVENOUS POINT)
     Route: 041
     Dates: start: 20250919, end: 20250919
  4. SODIUM CHLORIDE [Suspect]
     Active Substance: SODIUM CHLORIDE
     Dosage: 250 ML, QD (D1) (DOXORUBICIN HYDROCHLORIDE + 0.9% SODIUM CHLORIDE)
     Route: 041
     Dates: start: 20250919, end: 20250919
  5. SODIUM CHLORIDE [Suspect]
     Active Substance: SODIUM CHLORIDE
     Dosage: 70 ML, QD (D2) (PACLITAXEL FOR INJECTION (ALBUMIN BOUND) + 0.9% SODIUM CHLORIDE) (INTRAVENOUS POINT)
     Route: 041
     Dates: start: 20250920, end: 20250920
  6. DOXORUBICIN HYDROCHLORIDE [Suspect]
     Active Substance: DOXORUBICIN HYDROCHLORIDE
     Indication: Invasive ductal breast carcinoma
     Dosage: 70 MG, QD (D1)
     Route: 041
     Dates: start: 20250919, end: 20250919
  7. DOXORUBICIN HYDROCHLORIDE [Suspect]
     Active Substance: DOXORUBICIN HYDROCHLORIDE
     Indication: Metastases to lymph nodes
  8. PACLITAXEL [Suspect]
     Active Substance: PACLITAXEL
     Indication: Invasive ductal breast carcinoma
     Dosage: 350 MG, QD (D2) (INTRAVENOUS POINT)
     Route: 041
     Dates: start: 20250920, end: 20250920
  9. PACLITAXEL [Suspect]
     Active Substance: PACLITAXEL
     Indication: Metastases to lymph nodes

REACTIONS (1)
  - Myelosuppression [Recovering/Resolving]

NARRATIVE: CASE EVENT DATE: 20251003
